FAERS Safety Report 7909820-X (Version None)
Quarter: 2011Q4

REPORT INFORMATION
  Report Type: 
  Country: None (occurrence: None)
  Receive Date: 20111111
  Receipt Date: 20111104
  Transmission Date: 20120403
  Serious: Yes (Hospitalization, Disabling)
  Sender: FDA-Public Use
  Company Number: US-MERCK-1107USA03586

PATIENT
  Age: 69 Year
  Sex: Female

DRUGS (5)
  1. FOSAMAX [Suspect]
     Route: 048
     Dates: start: 20010101, end: 20080201
  2. FOSAMAX [Suspect]
     Route: 048
     Dates: start: 20010101, end: 20080201
  3. FOSAMAX [Suspect]
     Indication: OSTEOPOROSIS PROPHYLAXIS
     Route: 048
     Dates: start: 20001201, end: 20010101
  4. FOSAMAX [Suspect]
     Indication: OSTEOPENIA
     Route: 048
     Dates: start: 20001201, end: 20010101
  5. ALENDRONATE SODIUM [Suspect]
     Indication: OSTEOPOROSIS
     Route: 048
     Dates: start: 20080201, end: 20090607

REACTIONS (34)
  - LUDWIG ANGINA [None]
  - ROAD TRAFFIC ACCIDENT [None]
  - BLOOD PRESSURE DIASTOLIC INCREASED [None]
  - TOOTHACHE [None]
  - TOOTH ABSCESS [None]
  - CATARACT [None]
  - ORAL HERPES [None]
  - OEDEMA PERIPHERAL [None]
  - GOUT [None]
  - VEIN DISORDER [None]
  - URINARY INCONTINENCE [None]
  - ABSCESS [None]
  - OCCULT BLOOD POSITIVE [None]
  - HORMONE LEVEL ABNORMAL [None]
  - DIARRHOEA [None]
  - OSTEONECROSIS OF JAW [None]
  - TOOTH INFECTION [None]
  - TINNITUS [None]
  - RASH [None]
  - DENTAL CARIES [None]
  - GINGIVITIS [None]
  - PULPITIS DENTAL [None]
  - DEPRESSION [None]
  - DYSPHAGIA [None]
  - NAUSEA [None]
  - VOCAL CORD NEOPLASM [None]
  - OSTEOMYELITIS [None]
  - CONTUSION [None]
  - POLLAKIURIA [None]
  - TOOTH DISORDER [None]
  - FOOD ALLERGY [None]
  - ORAL DISORDER [None]
  - FALL [None]
  - CYSTOCELE [None]
